FAERS Safety Report 10130191 (Version 1)
Quarter: 2014Q2

REPORT INFORMATION
  Report Type: Spontaneous
  Country: US (occurrence: None)
  Receive Date: 20140425
  Receipt Date: 20140425
  Transmission Date: 20141212
  Serious: Yes (Other)
  Sender: FDA-Public Use
  Company Number: None

PATIENT
  Age: 66 Year
  Sex: Male
  Weight: 91.63 kg

DRUGS (1)
  1. SIMVASTATIN [Suspect]
     Indication: BLOOD CHOLESTEROL INCREASED
     Dosage: 1 TABLET, ONCE DAILY, TAKEN BY MOUTH
     Route: 048
     Dates: start: 20091031, end: 20140412

REACTIONS (7)
  - Myalgia [None]
  - Arthralgia [None]
  - Musculoskeletal disorder [None]
  - Muscle injury [None]
  - Tendon rupture [None]
  - Tendonitis [None]
  - Exercise tolerance decreased [None]
